FAERS Safety Report 10202768 (Version 1)
Quarter: 2014Q2

REPORT INFORMATION
  Report Type: Report from Study
  Country: US (occurrence: US)
  Receive Date: 20140528
  Receipt Date: 20140528
  Transmission Date: 20141212
  Serious: Yes (Hospitalization, Other)
  Sender: FDA-Public Use
  Company Number: US-ABBVIE-14P-163-1238978-00

PATIENT
  Sex: Male
  Weight: 120.31 kg

DRUGS (6)
  1. HUMIRA [Suspect]
     Indication: CROHN^S DISEASE
     Dates: start: 2011, end: 201205
  2. REMICADE [Concomitant]
     Indication: CROHN^S DISEASE
     Dates: start: 201303, end: 201405
  3. LOSARTAN [Concomitant]
     Indication: HYPERTENSION
  4. BISOPROLOL [Concomitant]
     Indication: HYPERTENSION
  5. OMEPRAZOLE [Concomitant]
     Indication: HIATUS HERNIA
  6. BABY ASPIRIN [Concomitant]
     Indication: ANTICOAGULANT THERAPY
     Dosage: BLOOD THINNER

REACTIONS (12)
  - Large intestinal obstruction [Recovered/Resolved]
  - Small intestinal obstruction [Recovered/Resolved]
  - Pain [Not Recovered/Not Resolved]
  - Acrochordon [Unknown]
  - Therapeutic response changed [Unknown]
  - Arthropathy [Not Recovered/Not Resolved]
  - Rash macular [Not Recovered/Not Resolved]
  - Dry skin [Not Recovered/Not Resolved]
  - Psoriasis [Not Recovered/Not Resolved]
  - Lower extremity mass [Recovering/Resolving]
  - Tendonitis [Recovering/Resolving]
  - Tendon rupture [Recovering/Resolving]
